FAERS Safety Report 22918409 (Version 4)
Quarter: 2023Q4

REPORT INFORMATION
  Report Type: Report from Study
  Country: PT (occurrence: PT)
  Receive Date: 20230907
  Receipt Date: 20231101
  Transmission Date: 20240109
  Serious: Yes (Life-Threatening, Other)
  Sender: FDA-Public Use
  Company Number: PT-ABBVIE-5397870

PATIENT
  Age: 62 Year
  Sex: Male

DRUGS (7)
  1. CARBIDOPA\LEVODOPA [Suspect]
     Active Substance: CARBIDOPA\LEVODOPA
     Indication: Parkinson^s disease
     Dosage: 20 MG + 5 MG, MORN:14.1CC;MAIN:3.6CC/H;EXTRA:1.5CC
     Route: 050
  2. CARBIDOPA\LEVODOPA [Suspect]
     Active Substance: CARBIDOPA\LEVODOPA
     Dosage: 20 MG + 5 MG, MORN:12CC;MAIN:3.3CC/H;EXTRA:1.5CC
     Route: 050
     Dates: start: 20210826
  3. BENSERAZIDE HYDROCHLORIDE\LEVODOPA [Concomitant]
     Active Substance: BENSERAZIDE HYDROCHLORIDE\LEVODOPA
     Indication: Product used for unknown indication
     Dosage: 2 TABLET, FREQUENCY TEXT: AT BEDTIME, BEFORE DUODOPA
     Route: 048
  4. BUPROPION HYDROCHLORIDE [Concomitant]
     Active Substance: BUPROPION HYDROCHLORIDE
     Indication: Product used for unknown indication
     Dosage: FREQUENCY TEXT: 7 AM?START DATE: BEFORE DUODOPA
     Route: 048
  5. CLOZAPINE [Concomitant]
     Active Substance: CLOZAPINE
     Indication: Product used for unknown indication
     Dosage: 7AM, LUNCH, DINNER AND BEDTIME, START DATE : BEFORE DUODOPA
     Route: 048
  6. CLONAZEPAM [Concomitant]
     Active Substance: CLONAZEPAM
     Indication: Product used for unknown indication
     Dosage: FORM STRENGTH: 1 MILLIGRAM , BEFORE DUODOPA
  7. AMANTADINE HYDROCHLORIDE [Concomitant]
     Active Substance: AMANTADINE HYDROCHLORIDE
     Indication: Product used for unknown indication
     Dosage: FREQUENCY TEXT: 7 AM AND LUNCH, BEFORE DUODOPA
     Route: 048

REACTIONS (5)
  - Suicide attempt [Recovered/Resolved]
  - Wound [Recovered/Resolved]
  - Hypophagia [Recovered/Resolved]
  - Limb injury [Recovered/Resolved]
  - Spinal fracture [Recovered/Resolved]

NARRATIVE: CASE EVENT DATE: 20230101
